FAERS Safety Report 19829469 (Version 1)
Quarter: 2021Q3

REPORT INFORMATION
  Report Type: Report from Study
  Country: US (occurrence: US)
  Receive Date: 20210914
  Receipt Date: 20210914
  Transmission Date: 20211014
  Serious: Yes (Death)
  Sender: FDA-Public Use
  Company Number: US-ASTRAZENECA-2021A722852

PATIENT
  Age: 22141 Day
  Sex: Male

DRUGS (18)
  1. TAGRISSO [Suspect]
     Active Substance: OSIMERTINIB
     Indication: NON-SMALL CELL LUNG CANCER METASTATIC
     Dosage: COMPLETE TAGRISSO DOSING INSTRUCTIONS: TAKE 80MG AND 160MG DOSES, ALTERNATING DAILY
     Route: 048
     Dates: start: 20180406
  2. TAMSULOSIN [Concomitant]
     Active Substance: TAMSULOSIN
  3. DEXAMETHASONE. [Concomitant]
     Active Substance: DEXAMETHASONE
  4. METRONIDAZOLE. [Concomitant]
     Active Substance: METRONIDAZOLE
  5. SENNA [Concomitant]
     Active Substance: SENNA LEAF\SENNOSIDES\SENNOSIDES A AND B
  6. RESTASIS [Concomitant]
     Active Substance: CYCLOSPORINE
  7. ZINC. [Concomitant]
     Active Substance: ZINC
  8. AZITHROMYCIN ANHYDROUS. [Concomitant]
     Active Substance: AZITHROMYCIN ANHYDROUS
  9. HYOSCYAMINE. [Concomitant]
     Active Substance: HYOSCYAMINE
  10. TAGRISSO [Suspect]
     Active Substance: OSIMERTINIB
     Indication: METASTASES TO CENTRAL NERVOUS SYSTEM
     Dosage: COMPLETE TAGRISSO DOSING INSTRUCTIONS: TAKE 80MG AND 160MG DOSES, ALTERNATING DAILY
     Route: 048
     Dates: start: 20180406
  11. GUANFACINE. [Concomitant]
     Active Substance: GUANFACINE
  12. LEVONORGESTREL?ETH EST [Concomitant]
  13. MIRALAX [Concomitant]
     Active Substance: POLYETHYLENE GLYCOL 3350
  14. LEVOFLOXACIN. [Concomitant]
     Active Substance: LEVOFLOXACIN
  15. MIRTAZAPINE. [Concomitant]
     Active Substance: MIRTAZAPINE
  16. ATROPINE. [Concomitant]
     Active Substance: ATROPINE
  17. AUGMENTIN [Concomitant]
     Active Substance: AMOXICILLIN\CLAVULANATE POTASSIUM
  18. TRANEXAMIC?ACID [Concomitant]

REACTIONS (1)
  - Death [Fatal]

NARRATIVE: CASE EVENT DATE: 20210903
